FAERS Safety Report 6400820-8 (Version None)
Quarter: 2009Q4

REPORT INFORMATION
  Report Type: 
  Country: None (occurrence: None)
  Receive Date: 20091009
  Receipt Date: 20090930
  Transmission Date: 20100525
  Serious: Yes (Hospitalization)
  Sender: FDA-Public Use
  Company Number: 2009AL006355

PATIENT
  Age: 59 Year
  Sex: Female

DRUGS (2)
  1. LOVASTATIN [Suspect]
  2. LEFLUNOMIDE [Concomitant]

REACTIONS (6)
  - BODY MASS INDEX INCREASED [None]
  - EOSINOPHIL COUNT ABNORMAL [None]
  - HEPATOCELLULAR INJURY [None]
  - INTERNATIONAL NORMALISED RATIO INCREASED [None]
  - LIVER INJURY [None]
  - LIVER TRANSPLANT [None]
